FAERS Safety Report 5235096-0 (Version None)
Quarter: 2007Q1

REPORT INFORMATION
  Report Type: 
  Country: None (occurrence: None)
  Receive Date: 20070205
  Receipt Date: 20070124
  Transmission Date: 20070707
  Serious: Yes (Other)
  Sender: FDA-Public Use
  Company Number: GAM-005-07-DE

PATIENT
  Age: 28 Year
  Sex: Male

DRUGS (1)
  1. OCTAGAM [Suspect]
     Indication: IMMUNODEFICIENCY COMMON VARIABLE

REACTIONS (5)
  - ANAPHYLACTOID REACTION [None]
  - CAPILLARY LEAK SYNDROME [None]
  - INFECTION [None]
  - PULMONARY OEDEMA [None]
  - RENAL FAILURE ACUTE [None]
